FAERS Safety Report 23791308 (Version 1)
Quarter: 2024Q2

REPORT INFORMATION
  Report Type: Spontaneous
  Country: US (occurrence: US)
  Receive Date: 20240428
  Receipt Date: 20240428
  Transmission Date: 20240715
  Serious: Yes (Other)
  Sender: FDA-Public Use
  Company Number: US-BRISTOL-MYERS SQUIBB COMPANY-2024-055570

PATIENT

DRUGS (1)
  1. OPDUALAG [Suspect]
     Active Substance: NIVOLUMAB\RELATLIMAB-RMBW
     Indication: Product used for unknown indication

REACTIONS (1)
  - Guillain-Barre syndrome [Unknown]
